FAERS Safety Report 9526071 (Version 1)
Quarter: 2013Q1

REPORT INFORMATION
  Report Type: Spontaneous
  Country: US (occurrence: None)
  Receive Date: 20130314
  Receipt Date: 20130314
  Transmission Date: 20140127
  Serious: Yes (Other)
  Sender: FDA-Public Use
  Company Number: 1301USA004857

PATIENT
  Age: 59 Year
  Sex: Male

DRUGS (3)
  1. VICTRELIS [Suspect]
     Dosage: 4X200 MG BY MOUTH THREE TIMES A DAY (EVERY 7-9 HOURS), ORAL?
     Route: 048
  2. PEGASYS [Suspect]
  3. RIBAVIRIN [Suspect]
     Dosage: , ORAL
     Route: 048

REACTIONS (5)
  - Pain [None]
  - Nausea [None]
  - Fatigue [None]
  - Abdominal discomfort [None]
  - Haemoglobin decreased [None]
